FAERS Safety Report 12887360 (Version 6)
Quarter: 2023Q2

REPORT INFORMATION
  Report Type: Report from Study
  Country: CA (occurrence: CA)
  Receive Date: 20161026
  Receipt Date: 20230607
  Transmission Date: 20230721
  Serious: Yes (Hospitalization, Other)
  Sender: FDA-Public Use
  Company Number: CA-TAKEDA-2016TUS019110

PATIENT
  Age: 33 Year
  Sex: Male

DRUGS (11)
  1. VEDOLIZUMAB [Suspect]
     Active Substance: VEDOLIZUMAB
     Indication: Crohn^s disease
     Dosage: 300 MILLIGRAM
     Route: 042
     Dates: start: 20160714
  2. VEDOLIZUMAB [Suspect]
     Active Substance: VEDOLIZUMAB
     Dosage: 300 MILLIGRAM
     Route: 042
  3. VEDOLIZUMAB [Suspect]
     Active Substance: VEDOLIZUMAB
     Dosage: 300 MILLIGRAM
     Route: 042
  4. PREDNISONE [Concomitant]
     Active Substance: PREDNISONE
     Dosage: UNK, 1/WEEK
     Dates: start: 201605
  5. IMURAN                             /00001501/ [Concomitant]
     Dosage: 150 MILLIGRAM, QD
     Dates: start: 2005, end: 201506
  6. IMURAN                             /00001501/ [Concomitant]
     Dosage: UNK
     Dates: start: 201603
  7. CIPRO                              /00697201/ [Concomitant]
     Dosage: 500 MILLIGRAM, BID
  8. METRONIDAZOLE [Concomitant]
     Active Substance: METRONIDAZOLE
     Dosage: 500 MILLIGRAM, BID
  9. GABAPENTIN [Concomitant]
     Active Substance: GABAPENTIN
     Dosage: 100 MILLIGRAM, TID
  10. TYLENOL [Concomitant]
     Active Substance: ACETAMINOPHEN
     Indication: Procedural pain
     Dosage: UNK
  11. METHYLPREDNISOLONE [Concomitant]
     Active Substance: METHYLPREDNISOLONE
     Indication: Premedication
     Dosage: 80 MILLIGRAM
     Route: 042

REACTIONS (3)
  - Anal abscess [Unknown]
  - Poor venous access [Not Recovered/Not Resolved]
  - Tooth fracture [Unknown]

NARRATIVE: CASE EVENT DATE: 20160922
